FAERS Safety Report 25640729 (Version 1)
Quarter: 2025Q3

REPORT INFORMATION
  Report Type: Spontaneous
  Country: US (occurrence: None)
  Receive Date: 20250802
  Receipt Date: 20250802
  Transmission Date: 20251021
  Serious: No
  Sender: FDA-CTU
  Company Number: None

PATIENT
  Age: 22 Year
  Sex: Female
  Weight: 108 kg

DRUGS (4)
  1. VRAYLAR [Suspect]
     Active Substance: CARIPRAZINE
     Indication: Depression
     Route: 048
     Dates: start: 20250707, end: 20250801
  2. VENLAFAXINE [Concomitant]
     Active Substance: VENLAFAXINE HYDROCHLORIDE
  3. DEVICE [Concomitant]
     Active Substance: DEVICE
  4. HERBALS\SPIRULINA [Concomitant]
     Active Substance: HERBALS\SPIRULINA

REACTIONS (5)
  - Social anxiety disorder [None]
  - Anxiety [None]
  - Impaired driving ability [None]
  - Feeling abnormal [None]
  - Confusional state [None]

NARRATIVE: CASE EVENT DATE: 20250801
